FAERS Safety Report 9463000 (Version 1)
Quarter: 2013Q3

REPORT INFORMATION
  Report Type: Spontaneous
  Country: BR (occurrence: BR)
  Receive Date: 20130816
  Receipt Date: 20130816
  Transmission Date: 20140515
  Serious: Yes (Life-Threatening, Hospitalization, Other)
  Sender: FDA-Public Use
  Company Number: CHNY2013BR001724

PATIENT
  Age: 83 Year
  Sex: Female
  Weight: 68 kg

DRUGS (13)
  1. CALCIUM SANDOZ [Suspect]
     Indication: CALCIUM DEFICIENCY
     Dosage: 1000 MG, QD
     Route: 048
  2. CALCIUM SANDOZ [Suspect]
     Dosage: 1000 MG, QD
     Route: 048
     Dates: end: 201101
  3. CITALOPRAM [Suspect]
     Indication: DEPRESSION
     Dosage: 20 MG, QD
  4. EUTHYROX [Suspect]
     Dosage: 100 MG, QD EXCEPT WEDNESDAY AND SUNDAY
     Route: 048
  5. EUTHYROX [Suspect]
     Dosage: 125 MG, ON WEDNESDAYS AND SUNDAYS
     Route: 048
  6. OSCAL D                            /07451701/ [Concomitant]
     Indication: BLOOD CALCIUM ABNORMAL
     Dosage: 3 DF, QD
     Route: 048
     Dates: start: 201102
  7. CALCIUM CARBONATE [Concomitant]
     Indication: BLOOD CALCIUM ABNORMAL
     Dosage: 1 DF, QD
     Dates: start: 201102
  8. SIGMATRIOL [Concomitant]
     Indication: BLOOD CALCIUM ABNORMAL
     Dosage: 1 DF, QD
     Route: 048
     Dates: start: 201102
  9. PANTOCAL [Concomitant]
     Dosage: 80 MG, QD
     Route: 048
     Dates: start: 201102
  10. DIURISA [Concomitant]
     Indication: DIURETIC THERAPY
     Dosage: 40/10 MG, QD
     Route: 048
     Dates: start: 201102
  11. SUSTRATE [Concomitant]
     Indication: CARDIAC DISORDER
     Dosage: 20 MG, QD
     Route: 048
     Dates: start: 201102
  12. MAREVAN [Concomitant]
     Indication: ANTICOAGULANT THERAPY
     Dosage: 2.5 MG, QOD
     Route: 048
     Dates: start: 201102
  13. LORAX                                   /BRA/ [Concomitant]
     Indication: FEELING OF RELAXATION
     Dosage: 2 MG, QD
     Route: 048
     Dates: start: 201102

REACTIONS (9)
  - Cerebrovascular accident [Recovered/Resolved]
  - Coma [Recovered/Resolved]
  - Nodule [Recovered/Resolved]
  - Dyspnoea [Recovered/Resolved]
  - Depression [Not Recovered/Not Resolved]
  - Cardiac disorder [Recovering/Resolving]
  - Heart rate decreased [Recovering/Resolving]
  - Blood calcium decreased [Recovered/Resolved]
  - Gastrooesophageal reflux disease [Not Recovered/Not Resolved]
